FAERS Safety Report 23578217 (Version 1)
Quarter: 2024Q1

REPORT INFORMATION
  Report Type: Report from Study
  Country: US (occurrence: US)
  Receive Date: 20240229
  Receipt Date: 20240229
  Transmission Date: 20240410
  Serious: Yes (Other)
  Sender: FDA-Public Use
  Company Number: US-ARGENX-2024-ARGX-US001278

PATIENT

DRUGS (2)
  1. VYVGART [Suspect]
     Active Substance: EFGARTIGIMOD ALFA-FCAB
     Indication: Myasthenia gravis
     Dosage: UNK
     Route: 042
     Dates: start: 20220706
  2. IRON [Concomitant]
     Active Substance: IRON
     Indication: Blood iron abnormal
     Dosage: 2 PILLS A DAY

REACTIONS (2)
  - Glaucoma [Unknown]
  - Blood pressure increased [Unknown]
